FAERS Safety Report 9758699 (Version 1)
Quarter: 2013Q4

REPORT INFORMATION
  Report Type: Spontaneous
  Country: IN (occurrence: None)
  Receive Date: 20131216
  Receipt Date: 20131216
  Transmission Date: 20140711
  Serious: No
  Sender: FDA-Public Use
  Company Number: 2013-00983(0)

PATIENT
  Age: 32 Year
  Sex: Male

DRUGS (1)
  1. LEVETIRACETAM [Suspect]
     Dosage: 1 DOSAGE FORMS ( 1 DOSAGE FORMS,1 IN 1 D) , ORAL?

REACTIONS (2)
  - Dizziness [None]
  - Somnolence [None]
